FAERS Safety Report 9184033 (Version 1)
Quarter: 2012Q4

REPORT INFORMATION
  Report Type: 
  Country: US (occurrence: US)
  Receive Date: 20121101
  Receipt Date: 20121101
  Transmission Date: 20130627
  Serious: Yes (Hospitalization)
  Sender: FDA-Public Use
  Company Number: US-UCBSA-060178

PATIENT
  Age: 39 Year
  Sex: Female
  Weight: 77.11 kg

DRUGS (5)
  1. CIMZIA [Suspect]
     Indication: CROHN^S DISEASE
     Route: 058
     Dates: start: 20120616, end: 2012
  2. AZATHIOPRINE [Concomitant]
     Indication: CROHN^S DISEASE
     Dosage: LONG TERM
     Route: 048
  3. TRAMADOL [Concomitant]
     Indication: ARTHRITIS
     Dosage: LONG TERM
     Route: 048
  4. PREDNISONE [Concomitant]
     Indication: CROHN^S DISEASE
     Route: 048
     Dates: start: 201111, end: 20120626
  5. PENTASA [Concomitant]
     Indication: CROHN^S DISEASE
     Dosage: LONG TERM
     Route: 048

REACTIONS (8)
  - Pyrexia [Recovered/Resolved]
  - Nausea [Recovered/Resolved]
  - Vomiting [Recovered/Resolved]
  - Fatigue [Recovered/Resolved]
  - Asthenia [Not Recovered/Not Resolved]
  - Decreased appetite [Recovered/Resolved]
  - Pain [Not Recovered/Not Resolved]
  - Lethargy [Not Recovered/Not Resolved]
